FAERS Safety Report 9001341 (Version 1)
Quarter: 2013Q1

REPORT INFORMATION
  Report Type: Spontaneous
  Country: DE (occurrence: DE)
  Receive Date: 20130107
  Receipt Date: 20130107
  Transmission Date: 20140127
  Serious: Yes (Hospitalization)
  Sender: FDA-Public Use
  Company Number: DE-MYLANLABS-2013S1000194

PATIENT
  Age: 27 Year
  Sex: Male
  Weight: 90 kg

DRUGS (1)
  1. BACLOFEN [Suspect]
     Indication: PRODUCT USED FOR UNKNOWN INDICATION
     Dosage: 10 TO 25 TABLETS (250 TO 500 MG)
     Route: 048
     Dates: start: 20121225

REACTIONS (5)
  - Overdose [Unknown]
  - Drug abuse [Unknown]
  - Psychotic disorder [Unknown]
  - Aggression [Unknown]
  - Agitation [Unknown]
